FAERS Safety Report 17881532 (Version 3)
Quarter: 2020Q3

REPORT INFORMATION
  Report Type: Spontaneous
  Country: US (occurrence: US)
  Receive Date: 20200610
  Receipt Date: 20200728
  Transmission Date: 20201103
  Serious: Yes (Other)
  Sender: FDA-Public Use
  Company Number: US-ASTRAZENECA-2020SE70444

PATIENT
  Age: 854 Month
  Sex: Female
  Weight: 75.3 kg

DRUGS (2)
  1. ACYCLOVIR. [Concomitant]
     Active Substance: ACYCLOVIR
     Indication: HERPES SIMPLEX
     Dosage: 800 MG FIVE TIMES DAILY FOR SEVEN DAYS
  2. FASENRA [Suspect]
     Active Substance: BENRALIZUMAB
     Indication: ASTHMA
     Route: 058
     Dates: start: 20190917

REACTIONS (15)
  - Eye pruritus [Not Recovered/Not Resolved]
  - Lip swelling [Recovered/Resolved]
  - Herpes simplex [Unknown]
  - Swelling face [Not Recovered/Not Resolved]
  - Oral pruritus [Not Recovered/Not Resolved]
  - Abdominal distension [Not Recovered/Not Resolved]
  - Swollen tongue [Recovered/Resolved]
  - Swelling [Unknown]
  - Asthma [Unknown]
  - Drug ineffective [Unknown]
  - Oropharyngeal pain [Not Recovered/Not Resolved]
  - Fatigue [Not Recovered/Not Resolved]
  - Paraesthesia oral [Not Recovered/Not Resolved]
  - Anaphylactic reaction [Unknown]
  - Skin irritation [Not Recovered/Not Resolved]

NARRATIVE: CASE EVENT DATE: 202005
